FAERS Safety Report 10475118 (Version 2)
Quarter: 2014Q4

REPORT INFORMATION
  Report Type: Spontaneous
  Country: US (occurrence: US)
  Receive Date: 20140925
  Receipt Date: 20141222
  Transmission Date: 20150528
  Serious: Yes (Other)
  Sender: FDA-Public Use
  Company Number: US-ROCHE-1465790

PATIENT
  Age: 28 Year
  Sex: Female
  Weight: 50.85 kg

DRUGS (6)
  1. XOPENEX [Concomitant]
     Active Substance: LEVALBUTEROL HYDROCHLORIDE
     Indication: ASTHMA
     Dosage: RESPIRATORY (INHALATION), 45 MCG/ACT, Q4 PRN
     Route: 065
     Dates: start: 20140321
  2. DULERA [Concomitant]
     Active Substance: FORMOTEROL FUMARATE DIHYDRATE\MOMETASONE FUROATE
     Indication: ASTHMA
     Dosage: RESPIRATORY (INHALATION), 100/5 2 PUFFS
     Route: 065
     Dates: start: 20140321
  3. XOLAIR [Suspect]
     Active Substance: OMALIZUMAB
     Indication: PRODUCT USED FOR UNKNOWN INDICATION
     Route: 058
     Dates: start: 20140904, end: 20140922
  4. NASONEX [Concomitant]
     Active Substance: MOMETASONE FUROATE
     Indication: RHINITIS ALLERGIC
     Dosage: RESPIRATORY (INHALATION), 2 SPRAYS
     Route: 065
     Dates: start: 20140321
  5. CLARITIN [Concomitant]
     Active Substance: LORATADINE
     Indication: RHINITIS ALLERGIC
     Route: 048
     Dates: start: 20140321
  6. ALBUTEROL. [Concomitant]
     Active Substance: ALBUTEROL
     Indication: ASTHMA
     Dosage: RESPIRATORY (INHALATION)
     Route: 065
     Dates: start: 20140321

REACTIONS (2)
  - Anaphylactic reaction [Recovered/Resolved]
  - Product quality issue [Unknown]

NARRATIVE: CASE EVENT DATE: 20140904
